FAERS Safety Report 8529155 (Version 5)
Quarter: 2012Q4

REPORT INFORMATION
  Report Type: Report from Study
  Country: US (occurrence: US)
  Receive Date: 20120425
  Receipt Date: 20120924
  Transmission Date: 20130627
  Serious: Yes (Death)
  Sender: FDA-Public Use
  Company Number: US-SANOFI-AVENTIS-2012SA026710

PATIENT
  Age: 49 Year
  Sex: Female
  Weight: 69.9 kg

DRUGS (5)
  1. INSULIN GLARGINE [Suspect]
     Indication: TYPE I DIABETES MELLITUS
     Dosage: Dose:25 unit(s)
     Route: 058
     Dates: start: 20111011
  2. INSULIN LISPRO [Suspect]
     Indication: TYPE I DIABETES MELLITUS
     Dosage: Dose:37 unit(s)
     Route: 058
     Dates: start: 20111011
  3. LIPITOR /UNK/ [Concomitant]
     Dates: start: 2004, end: 20120331
  4. FUROSEMIDE [Concomitant]
     Indication: HYPERKALAEMIA
     Dates: start: 2005, end: 20120331
  5. COREG [Concomitant]
     Dates: start: 2005, end: 20120331

REACTIONS (1)
  - Hypertrophic cardiomyopathy [Fatal]
